FAERS Safety Report 5990171-8 (Version None)
Quarter: 2008Q4

REPORT INFORMATION
  Report Type: 
  Country: None (occurrence: None)
  Receive Date: 20081210
  Receipt Date: 20081128
  Transmission Date: 20090506
  Serious: Yes (Hospitalization, Other)
  Sender: FDA-Public Use
  Company Number: 100#03#2008-06067

PATIENT
  Age: 67 Year
  Sex: Female

DRUGS (10)
  1. CITALOPRAM HYDROBROMIDE [Suspect]
     Indication: DEPRESSION
     Dosage: 20 MG TWICE
     Route: 048
     Dates: start: 20081012
  2. ESOMEPRAZOLE MAGNESIUM [Suspect]
     Indication: DRUG USE FOR UNKNOWN INDICATION
     Dosage: 40 MG ONCE ORAL
     Route: 048
     Dates: end: 20081013
  3. ZOTON (TABLETS) (LANSOPRAZOLE) [Suspect]
     Indication: DRUG USE FOR UNKNOWN INDICATION
     Route: 048
  4. CO-DYDRAMOL (DIHYDROCODEINE TARTRATE, PARACETAMOL) [Concomitant]
  5. NIFEDIPINE [Concomitant]
  6. PERINDOPRIL ERBUMINE [Concomitant]
  7. SALBUTAMOL (SALBUTAMOL) [Concomitant]
  8. SERETIDE (FLUTICASONE, SALMETEROL) [Concomitant]
  9. VITAMIN B COMPLEX (UNKNOWN) [Concomitant]
  10. ZOPICLONE (ZOPICLONE) [Concomitant]

REACTIONS (4)
  - CHEST PAIN [None]
  - CHRONIC OBSTRUCTIVE PULMONARY DISEASE [None]
  - CONDITION AGGRAVATED [None]
  - HYPONATRAEMIA [None]
